FAERS Safety Report 7269452-6 (Version None)
Quarter: 2011Q1

REPORT INFORMATION
  Report Type: 
  Country: None (occurrence: None)
  Receive Date: 20110125
  Receipt Date: 20110114
  Transmission Date: 20110831
  Serious: Yes (Hospitalization)
  Sender: FDA-Public Use
  Company Number: 806405

PATIENT
  Age: 54 Year
  Sex: Female

DRUGS (1)
  1. PACLITAXEL [Suspect]
     Indication: OVARIAN CANCER
     Dosage: 80 MG/M 2 MILLIGRAM(S)/SQ. METER INTRAVENOUS (NO OTHERWISE SPECIFIED)
     Route: 042
     Dates: start: 20100917, end: 20101014

REACTIONS (1)
  - DRUG HYPERSENSITIVITY [None]
